FAERS Safety Report 4284095-4 (Version None)
Quarter: 2004Q1

REPORT INFORMATION
  Report Type: 
  Country: None (occurrence: None)
  Receive Date: 20040130
  Receipt Date: 20040112
  Transmission Date: 20041129
  Serious: Yes (Other)
  Sender: FDA-Public Use
  Company Number: USA031051103

PATIENT
  Age: 68 Year
  Sex: Female

DRUGS (4)
  1. FORTEO [Suspect]
     Dates: start: 20031006
  2. ENBREL [Concomitant]
  3. METHOTREXATE [Concomitant]
  4. CELEBREX [Concomitant]

REACTIONS (4)
  - ABASIA [None]
  - ASTHENIA [None]
  - CIRCULATORY COLLAPSE [None]
  - NIGHT SWEATS [None]
